FAERS Safety Report 9959448 (Version 1)
Quarter: 2014Q1

REPORT INFORMATION
  Report Type: Report from Study
  Country: US (occurrence: US)
  Receive Date: 20140305
  Receipt Date: 20140305
  Transmission Date: 20141002
  Serious: No
  Sender: FDA-Public Use
  Company Number: US-ABBVIE-13P-163-1102577-00

PATIENT
  Age: 70 Year
  Sex: Female

DRUGS (4)
  1. HUMIRA [Suspect]
     Indication: CROHN^S DISEASE
     Dosage: LOADING DOSE
     Dates: start: 20130514, end: 20130514
  2. HUMIRA [Suspect]
     Dosage: LOADING DOSE
     Dates: start: 20130528
  3. UNKNOWN MEDICATION [Concomitant]
     Indication: PALPITATIONS
  4. MULTIVITAMINS [Concomitant]
     Indication: ANAEMIA

REACTIONS (2)
  - Haemoglobin decreased [Unknown]
  - Rectal haemorrhage [Not Recovered/Not Resolved]
